FAERS Safety Report 5827249-5 (Version None)
Quarter: 2008Q3

REPORT INFORMATION
  Report Type: 
  Country: None (occurrence: None)
  Receive Date: 20080730
  Receipt Date: 20080725
  Transmission Date: 20090109
  Serious: Yes (Other)
  Sender: FDA-Public Use
  Company Number: GB-ROCHE-578055

PATIENT
  Sex: Female
  Weight: 134.2 kg

DRUGS (11)
  1. ORLISTAT [Suspect]
     Indication: OBESITY
     Route: 048
     Dates: start: 20080107
  2. OXYCODONE HCL [Concomitant]
     Dosage: 5MG, TWO TIMES A DAY, WHEN NEEDED
     Route: 048
  3. OXYCODONE HCL [Concomitant]
     Dosage: 20MG, TWO TIMES A DAY, WHEN NEEDED
     Route: 048
  4. ASPIRIN [Concomitant]
     Route: 048
  5. SIMVASTATIN [Concomitant]
     Route: 048
  6. DOXAZOSIN MESYLATE [Concomitant]
     Indication: HYPERTENSION
     Route: 048
  7. FUROSEMIDE [Concomitant]
     Indication: DIURETIC THERAPY
     Route: 048
  8. METOPROLOL TARTRATE [Concomitant]
     Indication: HYPERTENSION
     Route: 048
  9. AMITRIPTYLINE HCL [Concomitant]
     Indication: SLEEP DISORDER THERAPY
     Route: 048
  10. LISINOPRIL [Concomitant]
     Indication: HYPERTENSION
     Route: 048
  11. OMEGA [Concomitant]
     Dosage: REPORTED AS OMEGA 3
     Route: 048

REACTIONS (1)
  - DIABETES MELLITUS [None]
